FAERS Safety Report 6412332-6 (Version None)
Quarter: 2009Q4

REPORT INFORMATION
  Report Type: 
  Country: None (occurrence: None)
  Receive Date: 20091023
  Receipt Date: 20091016
  Transmission Date: 20100525
  Serious: Yes (Hospitalization)
  Sender: FDA-Public Use
  Company Number: US-BIOGENIDEC-2009BI033807

PATIENT
  Age: 56 Year
  Sex: Female

DRUGS (1)
  1. AVONEX [Suspect]
     Indication: MULTIPLE SCLEROSIS
     Route: 030
     Dates: start: 20051228

REACTIONS (2)
  - INTERVERTEBRAL DISC PROTRUSION [None]
  - NERVE COMPRESSION [None]
